FAERS Safety Report 10685942 (Version 1)
Quarter: 2014Q4

REPORT INFORMATION
  Report Type: Spontaneous
  Country: US (occurrence: US)
  Receive Date: 20141231
  Receipt Date: 20141231
  Transmission Date: 20150529
  Serious: No
  Sender: FDA-Public Use
  Company Number: US-PFIZER INC-2014360265

PATIENT
  Age: 38 Year
  Sex: Male
  Weight: 79 kg

DRUGS (2)
  1. LYRICA [Suspect]
     Active Substance: PREGABALIN
     Indication: AMPUTATION
  2. LYRICA [Suspect]
     Active Substance: PREGABALIN
     Indication: HAND REPAIR OPERATION

REACTIONS (3)
  - Phantom pain [Unknown]
  - Intentional product misuse [Unknown]
  - Drug withdrawal syndrome [Unknown]

NARRATIVE: CASE EVENT DATE: 20141224
